FAERS Safety Report 6464226-8 (Version None)
Quarter: 2009Q4

REPORT INFORMATION
  Report Type: 
  Country: None (occurrence: None)
  Receive Date: 20091201
  Receipt Date: 20091118
  Transmission Date: 20100525
  Serious: Yes (Hospitalization)
  Sender: FDA-Public Use
  Company Number: CH-ELI_LILLY_AND_COMPANY-CH200911005194

PATIENT
  Age: 54 Year
  Sex: Male
  Weight: 56 kg

DRUGS (2)
  1. ALIMTA [Suspect]
     Indication: LUNG NEOPLASM MALIGNANT
     Dosage: 1000 MG, OTHER (MONTHLY)
     Route: 042
     Dates: start: 20090908
  2. BLOOD TRANSFUSION, AUXILIARY PRODUCTS [Concomitant]
     Indication: TRANSFUSION
     Dosage: UNK, UNKNOWN
     Route: 065
     Dates: start: 20091016, end: 20091017

REACTIONS (9)
  - MEDICATION ERROR [None]
  - PANCYTOPENIA [None]
  - PETECHIAE [None]
  - PURPURA [None]
  - RENAL FAILURE ACUTE [None]
  - SKIN BURNING SENSATION [None]
  - SKIN EXFOLIATION [None]
  - STOMATITIS [None]
  - VASCULITIS [None]
